FAERS Safety Report 7910787-9 (Version None)
Quarter: 2011Q4

REPORT INFORMATION
  Report Type: 
  Country: None (occurrence: None)
  Receive Date: 20111112
  Receipt Date: 20111104
  Transmission Date: 20120403
  Serious: Yes (Hospitalization)
  Sender: FDA-Public Use
  Company Number: US-MILLENNIUM PHARMACEUTICALS, INC.-2011-05339

PATIENT
  Sex: Male
  Weight: 79 kg

DRUGS (8)
  1. DEXAMETHASONE [Suspect]
     Indication: MANTLE CELL LYMPHOMA
     Dosage: 40 MG, CYCLIC
     Route: 048
     Dates: start: 20050829, end: 20051207
  2. RITUXIMAB [Suspect]
     Dosage: 375 UNK, UNK
     Dates: start: 20060426, end: 20080122
  3. RITUXIMAB [Suspect]
     Dosage: 375 UNK, UNK
     Route: 042
     Dates: start: 20060109
  4. CYCLOPHOSPHAMIDE [Suspect]
     Indication: MANTLE CELL LYMPHOMA
     Dosage: 300 MG/M2, CYCLIC
     Route: 042
     Dates: start: 20050829
  5. VINCRISTINE [Suspect]
     Indication: MANTLE CELL LYMPHOMA
     Dosage: 1 MG, CYCLIC
     Route: 042
  6. RITUXIMAB [Suspect]
     Indication: MANTLE CELL LYMPHOMA
     Dosage: 375 MG/M2, CYCLIC
     Route: 042
     Dates: start: 20050829, end: 20051207
  7. VELCADE [Suspect]
     Indication: MANTLE CELL LYMPHOMA
     Dosage: 1.3 MG/M2, CYCLIC
     Route: 042
     Dates: start: 20050829, end: 20051207
  8. DOXORUBICIN HCL [Suspect]
     Indication: MANTLE CELL LYMPHOMA
     Dosage: 25 MG/M2, CYCLIC
     Route: 042

REACTIONS (2)
  - PNEUMONIA [None]
  - CLOSTRIDIAL INFECTION [None]
